FAERS Safety Report 14478908 (Version 3)
Quarter: 2018Q3

REPORT INFORMATION
  Report Type: Spontaneous
  Country: US (occurrence: US)
  Receive Date: 20180202
  Receipt Date: 20180730
  Transmission Date: 20181010
  Serious: No
  Sender: FDA-Public Use
  Company Number: US-PFIZER INC-2018045376

PATIENT
  Age: 43 Year
  Sex: Female

DRUGS (1)
  1. NEURONTIN [Suspect]
     Active Substance: GABAPENTIN
     Dosage: UNK

REACTIONS (1)
  - Drug hypersensitivity [Unknown]
